FAERS Safety Report 20934896 (Version 1)
Quarter: 2022Q2

REPORT INFORMATION
  Report Type: Spontaneous
  Country: US (occurrence: US)
  Receive Date: 20220608
  Receipt Date: 20220608
  Transmission Date: 20220721
  Serious: No
  Sender: FDA-Public Use
  Company Number: US-AGILE THERAPEUTICS, INC.-US-AGI-2022-000181

PATIENT
  Age: 29 Year
  Sex: Female
  Weight: 50.794 kg

DRUGS (1)
  1. TWIRLA [Suspect]
     Active Substance: ETHINYL ESTRADIOL\LEVONORGESTREL
     Indication: Polycystic ovaries
     Dosage: 120 MCG/DAY LEVONORGESTREL AND 30 MCG/DAY ETHINYL ESTRADIOL
     Route: 062
     Dates: start: 202104

REACTIONS (2)
  - Menstrual disorder [Recovered/Resolved]
  - Intermenstrual bleeding [Not Recovered/Not Resolved]

NARRATIVE: CASE EVENT DATE: 20220126
